FAERS Safety Report 15599123 (Version 1)
Quarter: 2018Q4

REPORT INFORMATION
  Report Type: Spontaneous
  Country: US (occurrence: US)
  Receive Date: 20181108
  Receipt Date: 20181108
  Transmission Date: 20190205
  Serious: Yes (Other)
  Sender: FDA-Public Use
  Company Number: US-GILEAD-2018-0371970

PATIENT
  Age: 63 Year
  Sex: Male
  Weight: 79.6 kg

DRUGS (1)
  1. YESCARTA [Suspect]
     Active Substance: AXICABTAGENE CILOLEUCEL
     Indication: DIFFUSE LARGE B-CELL LYMPHOMA
     Dosage: UNK, ONCE
     Route: 042
     Dates: start: 20180905, end: 20180905

REACTIONS (16)
  - Headache [Unknown]
  - Hypotension [Unknown]
  - Pyrexia [Unknown]
  - Confusional state [Unknown]
  - Aphasia [Unknown]
  - Agitation [Unknown]
  - Tremor [Unknown]
  - Fatigue [Unknown]
  - Encephalopathy [Unknown]
  - Dysphagia [Unknown]
  - Cytokine release syndrome [Recovered/Resolved]
  - Somnolence [Unknown]
  - Disorientation [Unknown]
  - Tachycardia [Unknown]
  - Memory impairment [Unknown]
  - Neuropathy peripheral [Unknown]

NARRATIVE: CASE EVENT DATE: 20180907
